FAERS Safety Report 19063943 (Version 1)
Quarter: 2021Q1

REPORT INFORMATION
  Report Type: Spontaneous
  Country: DE (occurrence: DE)
  Receive Date: 20210326
  Receipt Date: 20210326
  Transmission Date: 20210420
  Serious: Yes (Hospitalization)
  Sender: FDA-Public Use
  Company Number: DE-TEVA-2021-DE-1893361

PATIENT
  Age: 32 Year
  Sex: Male

DRUGS (2)
  1. ALLOPURINOL. [Suspect]
     Active Substance: ALLOPURINOL
     Dosage: 300 MILLIGRAM DAILY; 0?0?1?0
     Route: 048
  2. ACETAZOLAMID [Suspect]
     Active Substance: ACETAZOLAMIDE
     Dosage: 1 DOSAGE FORMS DAILY; UNIT DOSE: 250 MG, 0.5?0?0.5?0
     Route: 048

REACTIONS (2)
  - Oedema peripheral [Unknown]
  - Haematoma [Unknown]
